FAERS Safety Report 7548912-4 (Version None)
Quarter: 2011Q2

REPORT INFORMATION
  Report Type: 
  Country: None (occurrence: None)
  Receive Date: 20110608
  Receipt Date: 20110602
  Transmission Date: 20111010
  Serious: Yes (Hospitalization)
  Sender: FDA-Public Use
  Company Number: 2011SP025568

PATIENT
  Age: 44 Year
  Sex: Male

DRUGS (1)
  1. REMERON [Suspect]
     Indication: DEPRESSION
     Dosage: 15 MG; BID; PO;  60 MG;HS; PO
     Route: 048
     Dates: start: 20110112

REACTIONS (1)
  - NO THERAPEUTIC RESPONSE [None]
